FAERS Safety Report 16297560 (Version 1)
Quarter: 2019Q2

REPORT INFORMATION
  Report Type: Spontaneous
  Country: US (occurrence: US)
  Receive Date: 20190509
  Receipt Date: 20190509
  Transmission Date: 20190711
  Serious: Yes (Hospitalization)
  Sender: FDA-Public Use
  Company Number: None

PATIENT
  Sex: Female

DRUGS (1)
  1. MYCOPHENOLATE [Suspect]
     Active Substance: MYCOPHENOLIC ACID
     Indication: LIVER TRANSPLANT
     Dosage: ?          OTHER FREQUENCY:TK 2 TS PO BID;?
     Route: 048
     Dates: start: 20190418

REACTIONS (3)
  - Therapy change [None]
  - Nausea [None]
  - Diarrhoea [None]
